FAERS Safety Report 9741036 (Version 2)
Quarter: 2014Q1

REPORT INFORMATION
  Report Type: Report from Study
  Country: JP (occurrence: JP)
  Receive Date: 20131209
  Receipt Date: 20140219
  Transmission Date: 20141002
  Serious: Yes (Life-Threatening, Hospitalization)
  Sender: FDA-Public Use
  Company Number: JP-SA-2013SA124712

PATIENT
  Age: 46 Year
  Sex: Female
  Weight: 67.9 kg

DRUGS (11)
  1. THYMOGLOBULINE [Suspect]
     Indication: BONE MARROW CONDITIONING REGIMEN
     Route: 042
     Dates: start: 20121215, end: 20121215
  2. THYMOGLOBULINE [Suspect]
     Indication: BONE MARROW CONDITIONING REGIMEN
     Route: 042
     Dates: start: 20121216, end: 20121216
  3. FLUDARABINE [Concomitant]
     Indication: BONE MARROW CONDITIONING REGIMEN
     Route: 065
     Dates: end: 20121215
  4. BUSULFAN [Concomitant]
     Indication: BONE MARROW CONDITIONING REGIMEN
     Route: 065
     Dates: end: 20121215
  5. METHYLPREDNISOLONE [Concomitant]
     Indication: PROPHYLAXIS AGAINST GRAFT VERSUS HOST DISEASE
     Route: 065
  6. TACROLIMUS [Concomitant]
     Indication: PROPHYLAXIS AGAINST GRAFT VERSUS HOST DISEASE
     Route: 065
  7. TEICOPLANIN [Concomitant]
     Indication: INFECTION PROPHYLAXIS
     Route: 065
     Dates: start: 20121212, end: 20121228
  8. CEFOZOPRAN [Concomitant]
     Indication: INFECTION PROPHYLAXIS
     Route: 065
     Dates: start: 20121212, end: 20121228
  9. GANCICLOVIR [Concomitant]
     Indication: INFECTION PROPHYLAXIS
     Route: 065
     Dates: start: 20121213, end: 20130123
  10. OTHER ANTIVIRALS [Concomitant]
     Indication: INFECTION PROPHYLAXIS
     Route: 065
     Dates: start: 20130130, end: 20130204
  11. BARACLUDE [Concomitant]
     Indication: HEPATITIS B
     Route: 065
     Dates: start: 20121221

REACTIONS (2)
  - Ventricular fibrillation [Recovered/Resolved]
  - Acute myeloid leukaemia recurrent [Recovered/Resolved]
